FAERS Safety Report 14893232 (Version 1)
Quarter: 2018Q2

REPORT INFORMATION
  Report Type: Spontaneous
  Country: US (occurrence: US)
  Receive Date: 20180514
  Receipt Date: 20180514
  Transmission Date: 20180711
  Serious: Yes (Other)
  Sender: FDA-Public Use
  Company Number: US-SUNOVION-2018SUN001796

PATIENT
  Age: 73 Year
  Sex: Male

DRUGS (1)
  1. LONHALA MAGNAIR [Suspect]
     Active Substance: GLYCOPYRROLATE
     Dosage: 25 MCG/ML UNK
     Route: 055
     Dates: start: 20180420

REACTIONS (1)
  - Cough [Unknown]

NARRATIVE: CASE EVENT DATE: 20180502
